FAERS Safety Report 9310932 (Version 1)
Quarter: 2013Q2

REPORT INFORMATION
  Report Type: Spontaneous
  Country: US (occurrence: None)
  Receive Date: 20130523
  Receipt Date: 20130523
  Transmission Date: 20140414
  Serious: Yes (Hospitalization)
  Sender: FDA-Public Use
  Company Number: None

PATIENT
  Age: 26 Year
  Sex: Male

DRUGS (1)
  1. VIVITROL [Suspect]

REACTIONS (3)
  - Suicidal ideation [None]
  - Drug dependence [None]
  - Drug detoxification [None]
